FAERS Safety Report 20484411 (Version 1)
Quarter: 2022Q1

REPORT INFORMATION
  Report Type: Spontaneous
  Country: US (occurrence: US)
  Receive Date: 20220217
  Receipt Date: 20220217
  Transmission Date: 20220423
  Serious: Yes (Other)
  Sender: FDA-Public Use
  Company Number: US-CELGENE-USA-20220203685

PATIENT
  Sex: Female

DRUGS (2)
  1. REVLIMID [Suspect]
     Active Substance: LENALIDOMIDE
     Indication: Plasma cell myeloma
     Dosage: 10 MILLIGRAM
     Route: 048
     Dates: start: 201911
  2. REVLIMID [Suspect]
     Active Substance: LENALIDOMIDE
     Indication: Drug therapy
     Dosage: 5 MILLIGRAM
     Route: 048
     Dates: start: 202105

REACTIONS (3)
  - Deep vein thrombosis [Unknown]
  - Neutropenia [Unknown]
  - Thrombocytopenia [Unknown]
